FAERS Safety Report 15370017 (Version 1)
Quarter: 2018Q3

REPORT INFORMATION
  Report Type: Report from Study
  Country: PL (occurrence: PL)
  Receive Date: 20180911
  Receipt Date: 20180911
  Transmission Date: 20181010
  Serious: Yes (Other)
  Sender: FDA-Public Use
  Company Number: PL-TEVA-2018-PL-952187

PATIENT
  Age: 27 Year
  Sex: Male

DRUGS (7)
  1. RELANIUM [Concomitant]
     Active Substance: DIAZEPAM
     Route: 065
  2. TISERCIN [Concomitant]
     Route: 065
  3. PERAZINE [Concomitant]
     Active Substance: PERAZINE
     Route: 065
  4. HYDROXYZINE [Concomitant]
     Active Substance: HYDROXYZINE HYDROCHLORIDE
     Route: 065
  5. CLOPIXOL [Suspect]
     Active Substance: ZUCLOPENTHIXOL
     Route: 065
  6. PRIDINOL [Concomitant]
     Active Substance: PRIDINOL
     Route: 065
  7. OLANZAPINE. [Suspect]
     Active Substance: OLANZAPINE
     Route: 065

REACTIONS (1)
  - Toxicity to various agents [Unknown]
